FAERS Safety Report 23403012 (Version 1)
Quarter: 2024Q1

REPORT INFORMATION
  Report Type: Spontaneous
  Country: US (occurrence: US)
  Receive Date: 20240115
  Receipt Date: 20240115
  Transmission Date: 20240410
  Serious: Yes (Other)
  Sender: FDA-Public Use
  Company Number: US-IBSA PHARMA INC.-2024IBS000006

PATIENT

DRUGS (1)
  1. TIROSINT-SOL [Suspect]
     Active Substance: LEVOTHYROXINE SODIUM
     Indication: Hypothyroidism
     Dosage: 50 MICROGRAM PER MILLILITRE
     Route: 048

REACTIONS (37)
  - Syncope [Unknown]
  - Discomfort [Unknown]
  - Chest discomfort [Unknown]
  - Urine output decreased [Unknown]
  - Dysphagia [Unknown]
  - Vasodilatation [Unknown]
  - Pyrexia [Unknown]
  - Temperature intolerance [Unknown]
  - Erythema [Unknown]
  - Eye swelling [Unknown]
  - Vision blurred [Unknown]
  - Diplopia [Unknown]
  - Heart rate irregular [Unknown]
  - Pain in jaw [Unknown]
  - Neck pain [Unknown]
  - Swelling face [Unknown]
  - Limb discomfort [Unknown]
  - Oral discomfort [Unknown]
  - Irregular breathing [Unknown]
  - Swollen tongue [Unknown]
  - Musculoskeletal discomfort [Unknown]
  - Pharyngeal swelling [Unknown]
  - Pain in extremity [Unknown]
  - Lip swelling [Unknown]
  - Dyspnoea [Unknown]
  - Chest pain [Unknown]
  - Urticaria [Unknown]
  - Menstrual disorder [Unknown]
  - Irritability [Unknown]
  - Headache [Unknown]
  - Hyperhidrosis [Unknown]
  - Arthralgia [Unknown]
  - Nausea [Unknown]
  - Pruritus [Unknown]
  - Fatigue [Unknown]
  - Rash [Unknown]
  - Palpitations [Unknown]
